FAERS Safety Report 16153986 (Version 3)
Quarter: 2020Q1

REPORT INFORMATION
  Report Type: Spontaneous
  Country: US (occurrence: US)
  Receive Date: 20190403
  Receipt Date: 20200227
  Transmission Date: 20200409
  Serious: Yes (Hospitalization)
  Sender: FDA-Public Use
  Company Number: US-PFIZER INC-2019128948

PATIENT
  Age: 74 Year
  Sex: Female
  Weight: 56.68 kg

DRUGS (4)
  1. RAPAMUNE [Suspect]
     Active Substance: SIROLIMUS
     Dosage: 1 MG, 1X/DAY
     Route: 048
  2. RAPAMUNE [Suspect]
     Active Substance: SIROLIMUS
     Indication: RENAL TRANSPLANT
     Dosage: UNK, TWO DAYS A WEEK A HALF
  3. RAPAMUNE [Suspect]
     Active Substance: SIROLIMUS
     Dosage: 1 MG, EVERY DAY EXCEPT TUESDAYS AND THURSDAYS AND ON TUESDAYS AND THURSDAYS, SHE WAS TAKING 0.5 MG
     Route: 048
  4. RAPAMUNE [Suspect]
     Active Substance: SIROLIMUS
     Dosage: 0.5 MG, DAILY

REACTIONS (5)
  - Drug level increased [Recovered/Resolved]
  - Weight decreased [Recovered/Resolved]
  - Hernia [Recovering/Resolving]
  - Off label use [Unknown]
  - Malaise [Recovered/Resolved]

NARRATIVE: CASE EVENT DATE: 2018
